FAERS Safety Report 7128595-8 (Version None)
Quarter: 2010Q4

REPORT INFORMATION
  Report Type: 
  Country: None (occurrence: None)
  Receive Date: 20101130
  Receipt Date: 20101119
  Transmission Date: 20110411
  Serious: Yes (Hospitalization)
  Sender: FDA-Public Use
  Company Number: FR-SANOFI-AVENTIS-2010SA070303

PATIENT
  Age: 74 Year
  Sex: Male

DRUGS (6)
  1. LOVENOX [Suspect]
     Route: 058
     Dates: start: 20100926, end: 20100928
  2. LOVENOX [Suspect]
     Route: 058
     Dates: start: 20101004, end: 20101018
  3. FLAGYL [Suspect]
     Dosage: STOPPED ON 13-OCT-2010 TO BE SWICHED  THE SAME DAY WITH TABLET FORM IN THE EVENING.
     Route: 048
     Dates: start: 20101008, end: 20101013
  4. FLAGYL [Suspect]
     Dosage: STARTED ON THE EVENING ON 13-OCT-2010.
     Route: 048
     Dates: start: 20101013, end: 20101018
  5. DIFFU K [Concomitant]
     Route: 048
     Dates: start: 20100927, end: 20100930
  6. DIFFU K [Concomitant]
     Route: 048
     Dates: start: 20101006, end: 20101018

REACTIONS (1)
  - AGRANULOCYTOSIS [None]
